FAERS Safety Report 22387744 (Version 1)
Quarter: 2023Q2

REPORT INFORMATION
  Report Type: Spontaneous
  Country: US (occurrence: US)
  Receive Date: 20230531
  Receipt Date: 20230531
  Transmission Date: 20230722
  Serious: Yes (Other)
  Sender: FDA-Public Use
  Company Number: US-MLMSERVICE-20211209-3262999-1

PATIENT
  Sex: Female

DRUGS (3)
  1. LAMOTRIGINE [Suspect]
     Active Substance: LAMOTRIGINE
     Indication: Generalised tonic-clonic seizure
     Dosage: UNKNOWN
     Route: 065
  2. PHENYTOIN [Suspect]
     Active Substance: PHENYTOIN
     Indication: Generalised tonic-clonic seizure
     Dosage: UNK
     Route: 065
  3. CARBAMAZEPINE [Suspect]
     Active Substance: CARBAMAZEPINE
     Indication: Generalised tonic-clonic seizure
     Dosage: UNK
     Route: 065

REACTIONS (1)
  - Seizure [Unknown]
